FAERS Safety Report 4513298-6 (Version None)
Quarter: 2004Q4

REPORT INFORMATION
  Report Type: 
  Country: None (occurrence: None)
  Receive Date: 20041124
  Receipt Date: 20041117
  Transmission Date: 20050328
  Serious: Yes (Death)
  Sender: FDA-Public Use
  Company Number: HQWYE495917NOV04

PATIENT
  Sex: Female

DRUGS (1)
  1. CORDARONE [Suspect]

REACTIONS (1)
  - IODINE ALLERGY [None]
